FAERS Safety Report 8759817 (Version 1)
Quarter: 2012Q4

REPORT INFORMATION
  Report Type: 
  Country: CA (occurrence: CA)
  Receive Date: 20120829
  Receipt Date: 20120829
  Transmission Date: 20130627
  Serious: Yes (Other)
  Sender: FDA-Public Use
  Company Number: CA-TEVA-356288USA

PATIENT
  Age: 61 Year
  Sex: Female

DRUGS (6)
  1. OXYBUTYNIN [Suspect]
     Dosage: 5 Milligram Daily;
  2. CALCIUM [Concomitant]
  3. EVENING PRIMROSE OIL [Concomitant]
  4. VAGIFEM [Concomitant]
     Route: 067
  5. VITAMIN C [Concomitant]
  6. VITAMIN E [Concomitant]

REACTIONS (2)
  - Anxiety [Recovered/Resolved]
  - Palpitations [Recovered/Resolved]
